FAERS Safety Report 20198510 (Version 1)
Quarter: 2021Q4

REPORT INFORMATION
  Report Type: Spontaneous
  Country: US (occurrence: None)
  Receive Date: 20211216
  Receipt Date: 20211216
  Transmission Date: 20220303
  Serious: Yes (Life-Threatening, Disabling)
  Sender: FDA-Public Use
  Company Number: None

PATIENT
  Age: 65 Year
  Sex: Female
  Weight: 78.75 kg

DRUGS (4)
  1. PROGESTERONE [Suspect]
     Active Substance: PROGESTERONE
     Indication: Night sweats
     Dosage: FREQUENCY : DAILY;?
     Route: 048
     Dates: start: 20210813, end: 20210816
  2. PROGESTERONE [Suspect]
     Active Substance: PROGESTERONE
     Indication: Hot flush
  3. TIGER BALM PATCHES [Concomitant]
  4. BUFFERIN [Concomitant]
     Active Substance: ASPIRIN

REACTIONS (16)
  - Product quality issue [None]
  - Chest pain [None]
  - Dyspnoea [None]
  - Painful respiration [None]
  - Cough [None]
  - Productive cough [None]
  - Chills [None]
  - Fatigue [None]
  - Generalised oedema [None]
  - Dysphonia [None]
  - Joint stiffness [None]
  - Peripheral swelling [None]
  - Peripheral swelling [None]
  - Gait disturbance [None]
  - Sleep disorder [None]
  - Impaired quality of life [None]

NARRATIVE: CASE EVENT DATE: 20210815
